FAERS Safety Report 6032191-3 (Version None)
Quarter: 2009Q1

REPORT INFORMATION
  Report Type: 
  Country: None (occurrence: None)
  Receive Date: 20090108
  Receipt Date: 20081230
  Transmission Date: 20090719
  Serious: Yes (Other)
  Sender: FDA-Public Use
  Company Number: NL-ROXANE LABORATORIES, INC.-2008-RO-00498RO

PATIENT
  Age: 48 Year
  Sex: Female

DRUGS (8)
  1. METHOTREXATE [Suspect]
     Indication: B PRECURSOR TYPE ACUTE LEUKAEMIA
  2. IMATINIB MESYLATE [Suspect]
     Indication: B PRECURSOR TYPE ACUTE LEUKAEMIA
     Dosage: 600MG
  3. CYTARABINE [Suspect]
     Indication: B PRECURSOR TYPE ACUTE LEUKAEMIA
     Route: 042
  4. ETOPOSIDE [Suspect]
     Indication: B PRECURSOR TYPE ACUTE LEUKAEMIA
  5. FOLINIC ACID [Suspect]
     Indication: B PRECURSOR TYPE ACUTE LEUKAEMIA
  6. LOOP DIURETICS [Suspect]
     Indication: OEDEMA PERIPHERAL
  7. LOOP DIURETICS [Suspect]
     Indication: PLEURAL EFFUSION
  8. LOOP DIURETICS [Suspect]
     Indication: ASCITES

REACTIONS (8)
  - ASCITES [None]
  - DRUG CLEARANCE DECREASED [None]
  - DRUG TOXICITY [None]
  - OEDEMA PERIPHERAL [None]
  - PLEURAL EFFUSION [None]
  - RENAL IMPAIRMENT [None]
  - STOMATITIS [None]
  - WEIGHT INCREASED [None]
